FAERS Safety Report 24587537 (Version 2)
Quarter: 2025Q2

REPORT INFORMATION
  Report Type: Report from Study
  Country: US (occurrence: US)
  Receive Date: 20241107
  Receipt Date: 20250411
  Transmission Date: 20250716
  Serious: No
  Sender: TAKEDA
  Company Number: US-TAKEDA-2019TUS044614

PATIENT
  Sex: Male
  Weight: 66 kg

DRUGS (3)
  1. IXAZOMIB [Suspect]
     Active Substance: IXAZOMIB
     Indication: Chronic myeloid leukaemia
     Dates: start: 20190720, end: 20220704
  2. IXAZOMIB [Suspect]
     Active Substance: IXAZOMIB
     Indication: Plasma cell myeloma
  3. IXAZOMIB [Suspect]
     Active Substance: IXAZOMIB

REACTIONS (4)
  - Visual acuity reduced [Unknown]
  - COVID-19 [Unknown]
  - Product dose omission issue [Unknown]
  - Off label use [Unknown]
